FAERS Safety Report 9543492 (Version 1)
Quarter: 2013Q2

REPORT INFORMATION
  Report Type: Spontaneous
  Country: US (occurrence: None)
  Receive Date: 20130524
  Receipt Date: 20130524
  Transmission Date: 20140414
  Serious: No
  Sender: FDA-Public Use
  Company Number: PHEH2013US001896

PATIENT
  Age: 51 Year
  Sex: Male

DRUGS (9)
  1. GILENYA [Suspect]
     Indication: MULTIPLE SCLEROSIS
     Route: 048
     Dates: start: 20121217
  2. VITAMIN D3 (COLECALCIFEROL) [Concomitant]
  3. ZOLPIDEM (ZOLPIDEM) [Concomitant]
  4. CITALOPRAM (CITALOPRAM) [Concomitant]
  5. FLUOXETINE (FLUOXETINE) [Concomitant]
  6. BUPROPION (BUPROPION) [Concomitant]
  7. NABUMETONE (NABUMETONE) [Concomitant]
  8. GABBAPENTIN (GABAPENTIN) [Concomitant]
  9. ROPINIROLE (ROPINIROLE) [Concomitant]

REACTIONS (3)
  - Anxiety [None]
  - Depression [None]
  - Personality change [None]
